FAERS Safety Report 4549457-6 (Version None)
Quarter: 2005Q1

REPORT INFORMATION
  Report Type: 
  Country: None (occurrence: None)
  Receive Date: 20050107
  Receipt Date: 20050107
  Transmission Date: 20050727
  Serious: Yes (Death)
  Sender: FDA-Public Use
  Company Number: None

PATIENT
  Age: 49 Year
  Sex: Female
  Weight: 65.318 kg

DRUGS (2)
  1. IRINOTECAN [Suspect]
     Indication: CERVIX CARCINOMA
     Dosage: 100 MG/M2; 2X3WKS; IV
     Route: 042
     Dates: start: 20030606, end: 20030718
  2. CAPECITABINE [Suspect]
     Indication: CERVIX CARCINOMA
     Dosage: 1750 MG/M2; 1-14 DAYS; IV
     Route: 042
     Dates: start: 20030606, end: 20030619

REACTIONS (2)
  - COMA [None]
  - PULSE ABSENT [None]
